FAERS Safety Report 9227780 (Version 2)
Quarter: 2013Q2

REPORT INFORMATION
  Report Type: Report from Study
  Country: US (occurrence: US)
  Receive Date: 20130412
  Receipt Date: 20130510
  Transmission Date: 20140414
  Serious: Yes (Hospitalization)
  Sender: FDA-Public Use
  Company Number: US-PURDUE-USA-2013-0100890

PATIENT
  Sex: Female
  Weight: 72.56 kg

DRUGS (1)
  1. OXYCONTIN (NDA 22-272) [Suspect]
     Indication: PAIN
     Dosage: 160 MG, Q12H
     Route: 048

REACTIONS (2)
  - Influenza [Recovered/Resolved]
  - Constipation [Not Recovered/Not Resolved]
